FAERS Safety Report 23781528 (Version 1)
Quarter: 2024Q2

REPORT INFORMATION
  Report Type: Report from Study
  Country: US (occurrence: US)
  Receive Date: 20240425
  Receipt Date: 20240425
  Transmission Date: 20240716
  Serious: Yes (Other)
  Sender: FDA-Public Use
  Company Number: US-ABBVIE-5730604

PATIENT
  Sex: Male

DRUGS (1)
  1. HUMIRA [Suspect]
     Active Substance: ADALIMUMAB
     Indication: Product used for unknown indication
     Dosage: FORM STRENGTH: 40 MILLIGRAM
     Route: 058

REACTIONS (4)
  - Hip surgery [Recovering/Resolving]
  - Fall [Recovering/Resolving]
  - Craniofacial fracture [Recovering/Resolving]
  - Weight bearing difficulty [Recovering/Resolving]

NARRATIVE: CASE EVENT DATE: 20220101
